FAERS Safety Report 20884266 (Version 1)
Quarter: 2022Q2

REPORT INFORMATION
  Report Type: Spontaneous
  Country: US (occurrence: None)
  Receive Date: 20220527
  Receipt Date: 20220527
  Transmission Date: 20220721
  Serious: Yes (Life-Threatening, Other)
  Sender: FDA-Public Use
  Company Number: US-Merck Healthcare KGaA-9325371

PATIENT
  Age: 61 Year
  Sex: Male
  Weight: 83 kg

DRUGS (16)
  1. METFORMIN HYDROCHLORIDE [Suspect]
     Active Substance: METFORMIN HYDROCHLORIDE
     Indication: Product used for unknown indication
  2. JAKAFI [Suspect]
     Active Substance: RUXOLITINIB
     Indication: Myelofibrosis
     Route: 048
     Dates: start: 202104
  3. JAKAFI [Suspect]
     Active Substance: RUXOLITINIB
     Indication: Splenomegaly
     Route: 048
  4. JAKAFI [Suspect]
     Active Substance: RUXOLITINIB
     Route: 048
     Dates: start: 20210603
  5. JAKAFI [Suspect]
     Active Substance: RUXOLITINIB
     Route: 048
     Dates: start: 20210605, end: 20210607
  6. JAKAFI [Suspect]
     Active Substance: RUXOLITINIB
     Route: 048
  7. JAKAFI [Suspect]
     Active Substance: RUXOLITINIB
     Route: 048
     Dates: start: 202107
  8. JAKAFI [Suspect]
     Active Substance: RUXOLITINIB
     Dates: start: 20210730
  9. JAKAFI [Suspect]
     Active Substance: RUXOLITINIB
     Dosage: 5 MILLIGRAM (1 TAB) BY MOUTH DAILY ALTERNATING WITH 10MG (2TABS) EVERY OTHER DAY
     Route: 048
  10. ALLOPURINOL [Concomitant]
     Active Substance: ALLOPURINOL
     Indication: Product used for unknown indication
  11. FENOFIBRATE [Concomitant]
     Active Substance: FENOFIBRATE
     Indication: Product used for unknown indication
  12. FLONASE ALLERGY RELIEF [Concomitant]
     Active Substance: FLUTICASONE PROPIONATE
     Indication: Product used for unknown indication
     Dosage: SUSPENSION
  13. FUROSEMIDE [Concomitant]
     Active Substance: FUROSEMIDE
     Indication: Product used for unknown indication
  14. GLIMEPIRIDE [Concomitant]
     Active Substance: GLIMEPIRIDE
     Indication: Product used for unknown indication
  15. VITAMINS NOS [Concomitant]
     Active Substance: VITAMINS
     Indication: Product used for unknown indication
  16. SPIRONOLACTONE [Concomitant]
     Active Substance: SPIRONOLACTONE
     Indication: Product used for unknown indication

REACTIONS (20)
  - Respiratory arrest [Not Recovered/Not Resolved]
  - Suicidal ideation [Not Recovered/Not Resolved]
  - Myocardial infarction [Not Recovered/Not Resolved]
  - Depression [Recovered/Resolved]
  - Kidney infection [Not Recovered/Not Resolved]
  - Renal pain [Not Recovered/Not Resolved]
  - Fatigue [Not Recovered/Not Resolved]
  - Asthenia [Unknown]
  - Insomnia [Unknown]
  - Anxiety [Unknown]
  - Hyperphagia [Unknown]
  - Skin ulcer [Unknown]
  - Skin ulcer haemorrhage [Unknown]
  - Constipation [Unknown]
  - Anaemia [Not Recovered/Not Resolved]
  - Headache [Unknown]
  - Hypoaesthesia [Unknown]
  - Hypersensitivity [Unknown]
  - Nausea [Unknown]
  - Diarrhoea [Unknown]

NARRATIVE: CASE EVENT DATE: 20210603
